FAERS Safety Report 4738338-0 (Version None)
Quarter: 2005Q3

REPORT INFORMATION
  Report Type: 
  Country: None (occurrence: None)
  Receive Date: 20050728
  Receipt Date: 20050412
  Transmission Date: 20060218
  Serious: Yes (Other)
  Sender: FDA-Public Use
  Company Number: 200513029US

PATIENT
  Age: 32 Year
  Sex: Female
  Weight: 109.1 kg

DRUGS (1)
  1. KETEK [Suspect]
     Indication: SINUSITIS
     Dosage: 800 MG QD PO
     Route: 048
     Dates: start: 20050405, end: 20050406

REACTIONS (3)
  - CONFUSIONAL STATE [None]
  - LETHARGY [None]
  - VISION BLURRED [None]
